FAERS Safety Report 8821423 (Version 1)
Quarter: 2012Q4

REPORT INFORMATION
  Report Type: 
  Country: US (occurrence: US)
  Receive Date: 20121002
  Receipt Date: 20121002
  Transmission Date: 20130627
  Serious: Yes (Hospitalization)
  Sender: FDA-Public Use
  Company Number: US-B.I. PHARMACEUTICALS,INC./RIDGEFIELD-2012-BP-23347BP

PATIENT
  Sex: Female
  Weight: 49 kg

DRUGS (12)
  1. COMBIVENT [Suspect]
     Indication: CHRONIC OBSTRUCTIVE PULMONARY DISEASE
     Route: 055
     Dates: start: 1990
  2. CLONIDINE [Concomitant]
     Indication: HYPERTENSION
     Dosage: 0.2 mg
     Route: 048
     Dates: start: 1970
  3. FUROSEMIDE [Concomitant]
     Indication: HYPERTENSION
     Dosage: 20 mg
     Route: 048
  4. ZETIA [Concomitant]
     Indication: BLOOD CHOLESTEROL INCREASED
     Dosage: 10 mg
     Route: 048
  5. GLYCOLAX [Concomitant]
     Indication: CONSTIPATION
  6. FLOVENT [Concomitant]
     Indication: CHRONIC OBSTRUCTIVE PULMONARY DISEASE
     Dosage: 88 mcg
     Route: 055
     Dates: start: 1990
  7. TARKA [Concomitant]
     Indication: HYPERTENSION
     Route: 048
  8. HYOMAX [Concomitant]
     Indication: MUSCLE RELAXANT THERAPY
     Route: 048
     Dates: start: 2000
  9. METOPROLOL [Concomitant]
     Indication: HYPERTENSION
     Dosage: 50 mg
     Route: 048
  10. ASPRIN [Concomitant]
     Indication: HYPERTENSION
     Dosage: 162 mg
     Route: 048
     Dates: start: 1970
  11. ASPRIN [Concomitant]
     Indication: ANTICOAGULANT THERAPY
  12. ANUCORT [Concomitant]
     Indication: HAEMORRHOIDS
     Route: 054
     Dates: start: 2008

REACTIONS (1)
  - Dyspnoea [Recovered/Resolved]
